FAERS Safety Report 9368739 (Version 4)
Quarter: 2016Q1

REPORT INFORMATION
  Report Type: Report from Study
  Country: US (occurrence: US)
  Receive Date: 20130626
  Receipt Date: 20160303
  Transmission Date: 20160526
  Serious: Yes (Death)
  Sender: FDA-Public Use
  Company Number: US-ROCHE-1241307

PATIENT
  Age: 40 Year
  Sex: Male
  Weight: 110.32 kg

DRUGS (5)
  1. PEGASYS [Suspect]
     Active Substance: PEGINTERFERON ALFA-2A
     Indication: HEPATITIS C
     Route: 058
     Dates: start: 20130510, end: 20130531
  2. COPEGUS [Suspect]
     Active Substance: RIBAVIRIN
     Indication: CHRONIC HEPATITIS C
  3. PEGASYS [Suspect]
     Active Substance: PEGINTERFERON ALFA-2A
     Indication: CHRONIC HEPATITIS C
  4. NEURONTIN [Concomitant]
     Active Substance: GABAPENTIN
     Route: 065
     Dates: start: 20130527
  5. COPEGUS [Suspect]
     Active Substance: RIBAVIRIN
     Indication: HEPATITIS C
     Route: 048
     Dates: start: 20130510, end: 20130602

REACTIONS (15)
  - Pain [Unknown]
  - Back pain [Unknown]
  - Dyspnoea [Unknown]
  - Hepatomegaly [Unknown]
  - Death [Fatal]
  - Pyrexia [Unknown]
  - Hepatic steatosis [Unknown]
  - Aspartate aminotransferase decreased [Unknown]
  - Myalgia [Unknown]
  - Asthenia [Unknown]
  - Aspartate aminotransferase increased [Not Recovered/Not Resolved]
  - Alanine aminotransferase increased [Not Recovered/Not Resolved]
  - Proteinuria [Unknown]
  - Fatigue [Unknown]
  - Blood albumin decreased [Unknown]

NARRATIVE: CASE EVENT DATE: 20130529
